FAERS Safety Report 17951769 (Version 2)
Quarter: 2020Q3

REPORT INFORMATION
  Report Type: Spontaneous
  Country: US (occurrence: US)
  Receive Date: 20200626
  Receipt Date: 20200708
  Transmission Date: 20201103
  Serious: Yes (Other)
  Sender: FDA-Public Use
  Company Number: US-BEH-2020119173

PATIENT
  Sex: Female

DRUGS (25)
  1. ARICEPT [Concomitant]
     Active Substance: DONEPEZIL HYDROCHLORIDE
     Dosage: 5 MILLIGRAM
     Route: 065
  2. NEURONTIN [Concomitant]
     Active Substance: GABAPENTIN
  3. EXALGO [Concomitant]
     Active Substance: HYDROMORPHONE HYDROCHLORIDE
  4. HYDROMORPHONE HCL [Concomitant]
     Active Substance: HYDROMORPHONE HYDROCHLORIDE
  5. HIZENTRA [Suspect]
     Active Substance: HUMAN IMMUNOGLOBULIN G
     Dosage: UNK
     Route: 058
  6. WELCHOL [Concomitant]
     Active Substance: COLESEVELAM HYDROCHLORIDE
  7. FLOVENT HFA [Concomitant]
     Active Substance: FLUTICASONE PROPIONATE
  8. OPANA [Concomitant]
     Active Substance: OXYMORPHONE HYDROCHLORIDE
  9. PREDNISONE. [Concomitant]
     Active Substance: PREDNISONE
  10. NIFEDIPINE. [Concomitant]
     Active Substance: NIFEDIPINE
  11. PROVENTIL HFA [SALBUTAMOL] [Concomitant]
  12. CEPHALEXINE [Concomitant]
     Active Substance: CEPHALEXIN
  13. HIZENTRA [Suspect]
     Active Substance: HUMAN IMMUNOGLOBULIN G
     Indication: IMMUNODEFICIENCY COMMON VARIABLE
     Dosage: 6 GRAM, QW
     Route: 058
     Dates: start: 2015
  14. BUDESONIDE. [Concomitant]
     Active Substance: BUDESONIDE
     Dosage: 3 MILLIGRAM, QD
     Route: 065
  15. PROPANOLOL HYDROCHLORIDE [Concomitant]
     Active Substance: PROPRANOLOL HYDROCHLORIDE
  16. ZIPRASIDONE HCL [Concomitant]
     Active Substance: ZIPRASIDONE HYDROCHLORIDE
  17. METAXALONE. [Concomitant]
     Active Substance: METAXALONE
  18. FANAPT [Concomitant]
     Active Substance: ILOPERIDONE
  19. CYMBALTA [Concomitant]
     Active Substance: DULOXETINE HYDROCHLORIDE
  20. VENLAFAXINE HCL [Concomitant]
     Active Substance: VENLAFAXINE HYDROCHLORIDE
  21. CICLOPIROX. [Concomitant]
     Active Substance: CICLOPIROX
  22. QUETIAPINE FUMARAT [Concomitant]
     Active Substance: QUETIAPINE FUMARATE
  23. LIDOCAINE. [Concomitant]
     Active Substance: LIDOCAINE
  24. ABILIFY [Concomitant]
     Active Substance: ARIPIPRAZOLE
  25. FLUVIRINE [Concomitant]
     Dosage: UNK
     Route: 065
     Dates: start: 2013, end: 2014

REACTIONS (8)
  - Abdominal distension [Not Recovered/Not Resolved]
  - Hypophagia [Not Recovered/Not Resolved]
  - Scoliosis [Not Recovered/Not Resolved]
  - Fatigue [Not Recovered/Not Resolved]
  - Headache [Not Recovered/Not Resolved]
  - Pain [Not Recovered/Not Resolved]
  - Oesophageal disorder [Not Recovered/Not Resolved]
  - Spinal cord compression [Not Recovered/Not Resolved]
